FAERS Safety Report 6812673-4 (Version None)
Quarter: 2010Q3

REPORT INFORMATION
  Report Type: 
  Country: None (occurrence: None)
  Receive Date: 20100701
  Receipt Date: 20100624
  Transmission Date: 20110219
  Serious: Yes (Other)
  Sender: FDA-Public Use
  Company Number: CN-ROCHE-711150

PATIENT
  Age: 53 Year
  Sex: Female
  Weight: 87.5 kg

DRUGS (2)
  1. XELODA [Suspect]
     Indication: BREAST CANCER
     Dosage: 1500 MG IN THE MORNING, 2000 MG IN THE EVENING
     Route: 048
     Dates: start: 20090501, end: 20090901
  2. XELODA [Suspect]
     Dosage: 2000 MG IN THE MORNING, 2500 MG IN THE EVENING
     Route: 048
     Dates: start: 20091201

REACTIONS (1)
  - NEOPLASM PROGRESSION [None]
